FAERS Safety Report 5992108-4 (Version None)
Quarter: 2008Q4

REPORT INFORMATION
  Report Type: 
  Country: None (occurrence: None)
  Receive Date: 20081211
  Receipt Date: 20081205
  Transmission Date: 20090506
  Serious: Yes (Other)
  Sender: FDA-Public Use
  Company Number: US-ALLERGAN-0814408US

PATIENT
  Sex: Male

DRUGS (4)
  1. BOTOX COSMETIC [Suspect]
     Indication: SKIN WRINKLING
     Dosage: UNK, SINGLE
     Route: 030
     Dates: start: 20081001, end: 20081001
  2. FORTEO [Concomitant]
     Indication: OSTEOPOROSIS
  3. OXYCONTIN [Concomitant]
     Indication: PAIN
     Route: 048
  4. PERCOCET [Concomitant]
     Indication: PAIN
     Route: 048

REACTIONS (6)
  - BACTERIAL INFECTION [None]
  - DEHYDRATION [None]
  - HYPERHIDROSIS [None]
  - INFLUENZA [None]
  - PYREXIA [None]
  - TREMOR [None]
